FAERS Safety Report 14306910 (Version 1)
Quarter: 2017Q4

REPORT INFORMATION
  Report Type: Report from Study
  Country: CA (occurrence: CA)
  Receive Date: 20171220
  Receipt Date: 20171220
  Transmission Date: 20180321
  Serious: Yes (Disabling)
  Sender: FDA-Public Use
  Company Number: CA-AMGEN-CANSL2017168340

PATIENT
  Age: 63 Year
  Sex: Male
  Weight: 85 kg

DRUGS (1)
  1. VECTIBIX [Suspect]
     Active Substance: PANITUMUMAB
     Indication: COLORECTAL CANCER
     Dosage: 377 MG, Q3WK
     Route: 042
     Dates: start: 201612

REACTIONS (4)
  - Discomfort [Unknown]
  - Fatigue [Unknown]
  - Somnolence [Recovered/Resolved]
  - Dyspnoea [Unknown]
